FAERS Safety Report 19786198 (Version 1)
Quarter: 2021Q3

REPORT INFORMATION
  Report Type: Spontaneous
  Country: FR (occurrence: FR)
  Receive Date: 20210903
  Receipt Date: 20210903
  Transmission Date: 20211014
  Serious: Yes (Death)
  Sender: FDA-Public Use
  Company Number: FR-TEVA-2021-FR-1947738

PATIENT
  Age: 49 Year
  Sex: Male

DRUGS (4)
  1. IRBESARTAN. [Suspect]
     Active Substance: IRBESARTAN
     Indication: PRODUCT USED FOR UNKNOWN INDICATION
     Dosage: UNKNOWN, THERAPY START DATE: NASK
     Route: 065
     Dates: end: 202003
  2. OXYCODONE [Suspect]
     Active Substance: OXYCODONE
     Indication: PRODUCT USED FOR UNKNOWN INDICATION
     Dosage: UNKNOWN, THERAPY START DATE: NASK
     Route: 065
     Dates: end: 202003
  3. ALCOOL [Suspect]
     Active Substance: ALCOHOL
     Dosage: UNKNOWN, THERAPY START DATE: NASK
     Route: 048
     Dates: end: 202003
  4. NORDIAZEPAM [Suspect]
     Active Substance: NORDAZEPAM
     Indication: PRODUCT USED FOR UNKNOWN INDICATION
     Dosage: UNKNOWN, THERAPY START DATE: NASK
     Route: 065
     Dates: end: 202003

REACTIONS (1)
  - Drug abuse [Fatal]
